FAERS Safety Report 9473404 (Version 1)
Quarter: 2013Q3

REPORT INFORMATION
  Report Type: Spontaneous
  Country: US (occurrence: US)
  Receive Date: 20130823
  Receipt Date: 20130823
  Transmission Date: 20140515
  Serious: No
  Sender: FDA-Public Use
  Company Number: US-BRISTOL-MYERS SQUIBB COMPANY-18942227

PATIENT
  Age: 68 Year
  Sex: Male
  Weight: 106.57 kg

DRUGS (18)
  1. SPRYCEL [Suspect]
     Indication: CHRONIC MYELOID LEUKAEMIA
     Dosage: INITIAL DOSE-100MG
     Route: 048
     Dates: start: 201302
  2. PLAVIX [Concomitant]
  3. ACETYLSALICYLIC ACID [Concomitant]
  4. FISH OIL [Concomitant]
  5. PLAVIX [Concomitant]
  6. ISOSORBIDE [Concomitant]
  7. IRON [Concomitant]
  8. AMARYL [Concomitant]
  9. METFORMIN [Concomitant]
  10. VITAMIN B12 [Concomitant]
  11. ZOCOR [Concomitant]
  12. ALTACE [Concomitant]
  13. OXYCONTIN [Concomitant]
  14. LANTUS [Concomitant]
  15. NEURONTIN [Concomitant]
  16. DOXYCYCLINE [Concomitant]
  17. POTASSIUM CHLORIDE [Concomitant]
  18. VITAMIN E [Concomitant]

REACTIONS (1)
  - Anaemia [Unknown]
